FAERS Safety Report 23960968 (Version 1)
Quarter: 2024Q2

REPORT INFORMATION
  Report Type: Report from Study
  Country: EG (occurrence: EG)
  Receive Date: 20240611
  Receipt Date: 20240611
  Transmission Date: 20240716
  Serious: No
  Sender: FDA-Public Use
  Company Number: EG-SANDOZ-SDZ2024EG055572

PATIENT
  Age: 10 Year
  Sex: Female
  Weight: 21 kg

DRUGS (1)
  1. OMNITROPE [Suspect]
     Active Substance: SOMATROPIN
     Indication: Growth hormone deficiency
     Dosage: 0.7 MG, QD
     Route: 058
     Dates: start: 202401

REACTIONS (5)
  - Injection site pain [Recovering/Resolving]
  - Poor quality device used [Unknown]
  - Drug administered in wrong device [Unknown]
  - Off label use [Unknown]
  - Device defective [Unknown]

NARRATIVE: CASE EVENT DATE: 20240101
